FAERS Safety Report 15221639 (Version 1)
Quarter: 2018Q3

REPORT INFORMATION
  Report Type: Spontaneous
  Country: US (occurrence: US)
  Receive Date: 20180731
  Receipt Date: 20180731
  Transmission Date: 20181010
  Serious: Yes (Death, Other)
  Sender: FDA-Public Use
  Company Number: US-GILEAD-2018-0351767

PATIENT
  Age: 68 Year
  Sex: Female
  Weight: 65.9 kg

DRUGS (1)
  1. YESCARTA [Suspect]
     Active Substance: AXICABTAGENE CILOLEUCEL
     Indication: DIFFUSE LARGE B-CELL LYMPHOMA
     Dosage: UNK
     Route: 065
     Dates: start: 20180503, end: 20180503

REACTIONS (28)
  - Histiocytosis haematophagic [Fatal]
  - Cytokine release syndrome [Unknown]
  - Hyperbilirubinaemia [Unknown]
  - Tachycardia [Unknown]
  - Incontinence [Unknown]
  - Memory impairment [Unknown]
  - Muscular weakness [Unknown]
  - Organ failure [Fatal]
  - Hypoxia [Unknown]
  - Pulmonary oedema [Unknown]
  - Cerebrovascular accident [Unknown]
  - Tachypnoea [Unknown]
  - Diarrhoea [Unknown]
  - Somnolence [Unknown]
  - Candida sepsis [Fatal]
  - Pyrexia [Unknown]
  - Cardiopulmonary failure [Fatal]
  - Aphasia [Unknown]
  - Encephalopathy [Unknown]
  - Seizure [Unknown]
  - Dysphagia [Unknown]
  - Fatigue [Unknown]
  - Pleural effusion [Unknown]
  - Ejection fraction decreased [Unknown]
  - Disorientation [Unknown]
  - Tremor [Unknown]
  - Hypotension [Unknown]
  - Confusional state [Unknown]

NARRATIVE: CASE EVENT DATE: 20180504
